FAERS Safety Report 19598422 (Version 2)
Quarter: 2021Q3

REPORT INFORMATION
  Report Type: Spontaneous
  Country: CA (occurrence: CA)
  Receive Date: 20210722
  Receipt Date: 20210823
  Transmission Date: 20211014
  Serious: No
  Sender: FDA-Public Use
  Company Number: CA-KALEO, INC.-2021KL000083

PATIENT
  Age: 69 Year
  Sex: Female

DRUGS (2)
  1. ALLERJECT [Suspect]
     Active Substance: EPINEPHRINE
     Dates: start: 20210623, end: 20210623
  2. ALLERJECT [Suspect]
     Active Substance: EPINEPHRINE
     Indication: ANAPHYLACTIC REACTION
     Dates: start: 20210623, end: 20210623

REACTIONS (4)
  - No adverse event [Not Recovered/Not Resolved]
  - Tremor [Unknown]
  - Palpitations [Unknown]
  - Drug dose omission by device [Not Recovered/Not Resolved]

NARRATIVE: CASE EVENT DATE: 20210623
